FAERS Safety Report 7706735-7 (Version None)
Quarter: 2011Q3

REPORT INFORMATION
  Report Type: 
  Country: None (occurrence: None)
  Receive Date: 20110818
  Receipt Date: 20110809
  Transmission Date: 20111222
  Serious: Yes (Hospitalization)
  Sender: FDA-Public Use
  Company Number: AUR-APL-2011-04512

PATIENT
  Age: 61 Year
  Sex: Male

DRUGS (4)
  1. CITALOPRAM HYDROBROMIDE [Suspect]
     Indication: DEPRESSION
  2. SIMVASTATIN [Concomitant]
  3. OXYCODONE HCL [Concomitant]
  4. FLUOROURACIL [Suspect]
     Indication: RECTAL CANCER
     Dosage: (225 MG/M2,1 D)

REACTIONS (5)
  - SINUS BRADYCARDIA [None]
  - PRESYNCOPE [None]
  - ELECTROCARDIOGRAM ST SEGMENT ELEVATION [None]
  - TOXICITY TO VARIOUS AGENTS [None]
  - CARDIAC OUTPUT DECREASED [None]
